FAERS Safety Report 16308548 (Version 1)
Quarter: 2019Q2

REPORT INFORMATION
  Report Type: Spontaneous
  Country: US (occurrence: US)
  Receive Date: 20190514
  Receipt Date: 20190514
  Transmission Date: 20190711
  Serious: Yes (Hospitalization, Other)
  Sender: FDA-Public Use
  Company Number: US-PFIZER INC-2019068696

PATIENT
  Age: 67 Year
  Sex: Male

DRUGS (6)
  1. XELJANZ [Suspect]
     Active Substance: TOFACITINIB CITRATE
     Indication: RHEUMATOID ARTHRITIS
     Dosage: 5 MG, 2X/DAY
     Dates: start: 2018
  2. LYRICA [Concomitant]
     Active Substance: PREGABALIN
     Dosage: 450 MG, DAILY [1 AM, 2 AT PM]
     Dates: start: 200803
  3. FINASTERIDE. [Concomitant]
     Active Substance: FINASTERIDE
     Dosage: 5 MG, 1X/DAY
  4. LISINOPRIL/HCTZ [Concomitant]
     Active Substance: HYDROCHLOROTHIAZIDE\LISINOPRIL
     Dosage: 1 DF, 1X/DAY  [LISINOPRIL: 20 MG, HCTZ: 25 MG]
  5. AZULFIDINE [Concomitant]
     Active Substance: SULFASALAZINE
     Dosage: 500 MG, 2X/DAY
  6. HYDROCODONE/ACETAMINOPHEN [Concomitant]
     Active Substance: ACETAMINOPHEN\HYDROCODONE
     Dosage: UNK [HYDROCODONE/ACETAMIN 5-325, 1 EVERY 6 HR]

REACTIONS (1)
  - Spinal stenosis [Recovered/Resolved]

NARRATIVE: CASE EVENT DATE: 201901
